FAERS Safety Report 8727224 (Version 2)
Quarter: 2015Q2

REPORT INFORMATION
  Report Type: Report from Study
  Country: US (occurrence: US)
  Receive Date: 20120816
  Receipt Date: 20150407
  Transmission Date: 20150821
  Serious: Yes (Other)
  Sender: FDA-Public Use
  Company Number: US-ROCHE-1101615

PATIENT
  Sex: Male

DRUGS (26)
  1. COLESTID [Concomitant]
     Active Substance: COLESTIPOL HYDROCHLORIDE
     Route: 065
  2. LIDOCAINE. [Concomitant]
     Active Substance: LIDOCAINE
     Dosage: 45CC/HR
     Route: 065
  3. AXID (UNITED STATES) [Concomitant]
     Route: 048
  4. XANAX [Concomitant]
     Active Substance: ALPRAZOLAM
     Route: 065
  5. ADVIL [Concomitant]
     Active Substance: IBUPROFEN
  6. TRIDIL [Concomitant]
     Active Substance: NITROGLYCERIN
     Dosage: 24CC/HR
     Route: 065
  7. PERSANTINE [Concomitant]
     Active Substance: DIPYRIDAMOLE
     Route: 048
  8. LIDOCAINE. [Concomitant]
     Active Substance: LIDOCAINE
     Route: 042
  9. LIDOCAINE. [Concomitant]
     Active Substance: LIDOCAINE
     Route: 041
  10. TRIDIL [Concomitant]
     Active Substance: NITROGLYCERIN
     Dosage: 18CC/HR
     Route: 065
  11. MAGNESIUM SULPHATE [Concomitant]
     Active Substance: MAGNESIUM SULFATE
     Route: 040
  12. AMITRIPTYLINE [Concomitant]
     Active Substance: AMITRIPTYLINE
     Route: 048
  13. ASPIRIN. [Concomitant]
     Active Substance: ASPIRIN
     Dosage: DAILY
     Route: 048
  14. NITROGLYCERINE [Concomitant]
     Active Substance: NITROGLYCERIN
     Route: 060
  15. TRIDIL [Concomitant]
     Active Substance: NITROGLYCERIN
     Dosage: 15CC
     Route: 065
  16. ACTIVASE [Suspect]
     Active Substance: ALTEPLASE
     Indication: MYOCARDIAL INFARCTION
     Dosage: 100CC/HR
     Route: 042
     Dates: start: 19931129
  17. TRIDIL [Concomitant]
     Active Substance: NITROGLYCERIN
     Dosage: 12CC
     Route: 065
  18. TRIDIL [Concomitant]
     Active Substance: NITROGLYCERIN
     Dosage: 70MCG/MIN
     Route: 065
  19. CAPOTEN [Concomitant]
     Active Substance: CAPTOPRIL
     Route: 048
  20. MEVACOR [Concomitant]
     Active Substance: LOVASTATIN
     Dosage: EVERY NIGHT AT BEDTIME
     Route: 048
  21. LIDOCAINE. [Concomitant]
     Active Substance: LIDOCAINE
     Dosage: 2G/500CC AT THE RATE OF 3000/HR
     Route: 040
  22. HEPARIN [Concomitant]
     Active Substance: HEPARIN SODIUM
     Dosage: 5000 UNITS AT THE RATE OF 20CC/HR
     Route: 042
  23. SELDANE D [Concomitant]
     Route: 048
  24. ACTIVASE [Suspect]
     Active Substance: ALTEPLASE
     Dosage: 100CC/HR
     Route: 042
  25. MORPHINE [Concomitant]
     Active Substance: MORPHINE
  26. NITROGLYCERINE [Concomitant]
     Active Substance: NITROGLYCERIN
     Route: 042

REACTIONS (3)
  - Ventricular extrasystoles [Unknown]
  - Somnolence [Unknown]
  - Back pain [Unknown]
